FAERS Safety Report 10226360 (Version 3)
Quarter: 2014Q2

REPORT INFORMATION
  Report Type: Spontaneous
  Country: US (occurrence: US)
  Receive Date: 20140609
  Receipt Date: 20140627
  Transmission Date: 20141212
  Serious: Yes (Death, Other)
  Sender: FDA-Public Use
  Company Number: US-009507513-1406USA002163

PATIENT
  Age: 53 Year
  Sex: Female

DRUGS (2)
  1. TEMODAR [Suspect]
     Dosage: UNK
     Route: 048
     Dates: end: 20140107
  2. AVASTIN (BEVACIZUMAB) [Concomitant]
     Dosage: UNK

REACTIONS (4)
  - Death [Fatal]
  - Neoplasm progression [Unknown]
  - Muscular weakness [Unknown]
  - Headache [Unknown]
